FAERS Safety Report 9661058 (Version 3)
Quarter: 2014Q1

REPORT INFORMATION
  Report Type: Report from Study
  Country: JP (occurrence: JP)
  Receive Date: 20131031
  Receipt Date: 20140319
  Transmission Date: 20141002
  Serious: Yes (Hospitalization)
  Sender: FDA-Public Use
  Company Number: JP-ABBVIE-13P-087-1164490-00

PATIENT
  Age: 69 Year
  Sex: Male

DRUGS (6)
  1. LIPACREON [Suspect]
     Indication: PANCREATIC INSUFFICIENCY
     Dosage: 1800 MG; SACHET
     Route: 048
     Dates: start: 20120809, end: 20130701
  2. LIPACREON [Suspect]
     Dates: start: 20130731
  3. OMEPRAZOLE [Concomitant]
     Indication: ANASTOMOTIC ULCER
  4. OMEPRAZOLE [Concomitant]
     Indication: PROPHYLAXIS
  5. SODIUM RABEPRAZOLE [Concomitant]
     Indication: ANASTOMOTIC ULCER
     Route: 048
  6. SODIUM RABEPRAZOLE [Concomitant]
     Indication: PROPHYLAXIS

REACTIONS (1)
  - Cerebral infarction [Recovered/Resolved]
